FAERS Safety Report 7231005-3 (Version None)
Quarter: 2011Q1

REPORT INFORMATION
  Report Type: 
  Country: None (occurrence: None)
  Receive Date: 20110118
  Receipt Date: 20110110
  Transmission Date: 20110831
  Serious: Yes (Hospitalization)
  Sender: FDA-Public Use
  Company Number: BR-ROCHE-752600

PATIENT
  Sex: Female

DRUGS (4)
  1. CYCLOSPORINE [Suspect]
     Indication: RENAL TRANSPLANT
     Route: 048
     Dates: start: 20090428
  2. PREDNISONE [Suspect]
     Indication: RENAL TRANSPLANT
     Route: 065
     Dates: start: 20080611
  3. MYCOPHENOLATE MOFETIL [Suspect]
     Route: 065
     Dates: start: 20090424
  4. CYCLOSPORINE [Suspect]
     Route: 048
     Dates: start: 20101222

REACTIONS (5)
  - WOUND EVISCERATION [None]
  - UTERINE CANCER [None]
  - ANAEMIA [None]
  - VAGINAL HAEMORRHAGE [None]
  - THROMBOPHLEBITIS SUPERFICIAL [None]
